FAERS Safety Report 5307066-5 (Version None)
Quarter: 2007Q2

REPORT INFORMATION
  Report Type: 
  Country: None (occurrence: None)
  Receive Date: 20070425
  Receipt Date: 20070413
  Transmission Date: 20071010
  Serious: Yes (Other)
  Sender: FDA-Public Use
  Company Number: PHBS2007BR06119

PATIENT
  Age: 46 Year
  Sex: Male

DRUGS (3)
  1. GLEEVEC [Suspect]
     Indication: CHRONIC MYELOID LEUKAEMIA
     Dosage: 400 MG/D
     Route: 048
     Dates: start: 20041201
  2. ACTOS [Concomitant]
     Dosage: 30 MG/D
     Route: 065
  3. GLUCOBAY [Concomitant]
     Indication: DIABETES MELLITUS
     Dosage: 50 MG, BID
     Route: 048

REACTIONS (2)
  - BLOOD CREATINE PHOSPHOKINASE INCREASED [None]
  - HIP ARTHROPLASTY [None]
